FAERS Safety Report 17374787 (Version 3)
Quarter: 2021Q1

REPORT INFORMATION
  Report Type: Spontaneous
  Country: US (occurrence: US)
  Receive Date: 20200205
  Receipt Date: 20210126
  Transmission Date: 20210419
  Serious: No
  Sender: FDA-Public Use
  Company Number: US-PFIZER INC-2020052263

PATIENT
  Age: 13 Year
  Sex: Male

DRUGS (2)
  1. EUCRISA [Suspect]
     Active Substance: CRISABOROLE
     Indication: DERMATITIS ATOPIC
     Dosage: UNK, TWICE A DAY (APPLY TO AFFECTED AREA FOR 30 DAYS/APPLY TO AFFECTED AREA TWO TIMES A DAY)
     Route: 061
  2. EUCRISA [Suspect]
     Active Substance: CRISABOROLE
     Indication: RHINITIS ALLERGIC

REACTIONS (1)
  - Burning sensation [Unknown]
